FAERS Safety Report 26004761 (Version 1)
Quarter: 2025Q4

REPORT INFORMATION
  Report Type: Spontaneous
  Country: US (occurrence: US)
  Receive Date: 20251106
  Receipt Date: 20251106
  Transmission Date: 20260118
  Serious: Yes (Hospitalization, Other)
  Sender: TORRENT PHARMA INC.
  Company Number: US-TORRENT-00014580

PATIENT
  Age: 14 Year
  Sex: Female

DRUGS (3)
  1. ARIPIPRAZOLE [Suspect]
     Active Substance: ARIPIPRAZOLE
     Indication: Product used for unknown indication
     Dosage: INGESTING AN UNKNOWN AMOUNT
     Route: 065
  2. BENZTROPINE [Suspect]
     Active Substance: BENZTROPINE
     Indication: Product used for unknown indication
     Dosage: INGESTING AN UNKNOWN AMOUNT
     Route: 065
  3. SERTRALINE [Suspect]
     Active Substance: SERTRALINE HYDROCHLORIDE
     Indication: Product used for unknown indication
     Dosage: INGESTING AN UNKNOWN AMOUNT
     Route: 065

REACTIONS (7)
  - Toxicity to various agents [Unknown]
  - Tachycardia [Unknown]
  - Hypertension [Unknown]
  - Mydriasis [Unknown]
  - Mucosal dryness [Unknown]
  - Delirium [Unknown]
  - Agitation [Unknown]
